FAERS Safety Report 9793237 (Version 2)
Quarter: 2014Q1

REPORT INFORMATION
  Report Type: Spontaneous
  Country: IT (occurrence: IT)
  Receive Date: 20140102
  Receipt Date: 20140109
  Transmission Date: 20141002
  Serious: Yes (Hospitalization)
  Sender: FDA-Public Use
  Company Number: IT-UCBSA-107116

PATIENT
  Age: 68 Year
  Sex: Male

DRUGS (8)
  1. KEPPRA [Suspect]
     Dosage: 50 MG TABLETS, 60 TABLETS
     Route: 048
     Dates: start: 20111201, end: 20131207
  2. HALCION [Concomitant]
     Dosage: 250 MCG TABLETS, 20 TABLETS
  3. FORMISTIN [Concomitant]
     Dosage: 10 MG, 20 TABLETS
     Dates: start: 20131206, end: 20131206
  4. DROMOS [Concomitant]
     Dosage: STRENGTH: 500 MG, 30 TABLETS
  5. QUINAZIDE [Concomitant]
     Dosage: 20 MG + 12.5 MG 1/2 TABLET
     Dates: start: 20110601
  6. AGGRENOX [Concomitant]
     Dosage: 200 MG + 25 MG MODIFIED RELEASE CAPSULE HARD
  7. TAVOR [Concomitant]
     Dosage: 1 MG TABLET, 20 TABLETS
  8. CARVEDILOL [Concomitant]
     Dosage: 1/2 TABLET IN THE EVENING

REACTIONS (6)
  - Confusional state [Recovered/Resolved]
  - Hyponatraemia [Recovered/Resolved]
  - Pyrexia [Unknown]
  - Dysstasia [Unknown]
  - Rib fracture [Unknown]
  - Fall [Unknown]
